FAERS Safety Report 19357586 (Version 1)
Quarter: 2021Q2

REPORT INFORMATION
  Report Type: Spontaneous
  Country: FR (occurrence: FR)
  Receive Date: 20210602
  Receipt Date: 20210602
  Transmission Date: 20210717
  Serious: Yes (Other)
  Sender: FDA-Public Use
  Company Number: FR-SAMSUNG BIOEPIS-SB-2021-09943

PATIENT
  Sex: Female

DRUGS (2)
  1. METOJECT [Concomitant]
     Active Substance: METHOTREXATE SODIUM
     Indication: PRODUCT USED FOR UNKNOWN INDICATION
     Route: 065
  2. BENEPALI [Suspect]
     Active Substance: ETANERCEPT
     Indication: MULTIPLE SCLEROSIS
     Dosage: NOV?2020 FROM THE REPORTING PHARMACY (PATIENT MIGHT STARTED BENEPALI PRIOR FROM ANOTHER PHARMACY)
     Route: 030
     Dates: start: 202011

REACTIONS (3)
  - Multiple sclerosis [Not Recovered/Not Resolved]
  - Arthropathy [Unknown]
  - Product use in unapproved indication [Unknown]
